FAERS Safety Report 12226329 (Version 1)
Quarter: 2016Q1

REPORT INFORMATION
  Report Type: Report from Study
  Country: BR (occurrence: BR)
  Receive Date: 20160331
  Receipt Date: 20160331
  Transmission Date: 20160526
  Serious: Yes (Other)
  Sender: FDA-Public Use
  Company Number: PHHY2016BR041521

PATIENT
  Sex: Male
  Weight: 69 kg

DRUGS (4)
  1. OXCARBAZEPINE. [Concomitant]
     Active Substance: OXCARBAZEPINE
     Indication: SEIZURE
     Dosage: 600 MG, UNK
     Route: 048
  2. OXCARBAZEPINE. [Concomitant]
     Active Substance: OXCARBAZEPINE
     Dosage: 1.5 DF (600 MG), UNK
     Route: 048
  3. TRILEPTAL [Suspect]
     Active Substance: OXCARBAZEPINE
     Dosage: 1.5 DF, UNK
     Route: 048
  4. TRILEPTAL [Suspect]
     Active Substance: OXCARBAZEPINE
     Indication: SEIZURE
     Dosage: 3 DF (600 MG), QD
     Route: 048

REACTIONS (6)
  - Somnolence [Unknown]
  - Vitiligo [Unknown]
  - Weight decreased [Unknown]
  - Ischaemia [Unknown]
  - Depressed mood [Unknown]
  - Wrong technique in product usage process [Unknown]
